FAERS Safety Report 12335246 (Version 1)
Quarter: 2016Q2

REPORT INFORMATION
  Report Type: Spontaneous
  Country: US (occurrence: US)
  Receive Date: 20160504
  Receipt Date: 20160504
  Transmission Date: 20160815
  Serious: Yes (Death)
  Sender: FDA-Public Use
  Company Number: US-ASTRAZENECA-2016SE46870

PATIENT
  Age: 828 Month
  Sex: Female

DRUGS (1)
  1. SYMBICORT [Suspect]
     Active Substance: BUDESONIDE\FORMOTEROL FUMARATE DIHYDRATE
     Indication: CHRONIC OBSTRUCTIVE PULMONARY DISEASE
     Dosage: 160 4.5 MCG, UNKNOWN DOSE AND FREQUENCY
     Route: 055

REACTIONS (2)
  - Treatment noncompliance [Unknown]
  - Death [Fatal]

NARRATIVE: CASE EVENT DATE: 201604
